FAERS Safety Report 11864946 (Version 1)
Quarter: 2015Q4

REPORT INFORMATION
  Report Type: Spontaneous
  Country: US (occurrence: US)
  Receive Date: 20151223
  Receipt Date: 20151223
  Transmission Date: 20160305
  Serious: No
  Sender: FDA-Public Use
  Company Number: US-PFIZER INC-2015462988

PATIENT
  Age: 50 Year
  Sex: Female

DRUGS (9)
  1. SOMA [Suspect]
     Active Substance: CARISOPRODOL
     Dosage: UNK
  2. MACROBID [Suspect]
     Active Substance: NITROFURANTOIN\NITROFURANTOIN MONOHYDRATE
     Dosage: UNK
  3. TOPAMAX [Suspect]
     Active Substance: TOPIRAMATE
     Dosage: UNK
  4. OCTREOTIDE. [Suspect]
     Active Substance: OCTREOTIDE
     Dosage: UNK
  5. CELEBREX [Suspect]
     Active Substance: CELECOXIB
     Dosage: UNK
  6. BIAXIN [Suspect]
     Active Substance: CLARITHROMYCIN
     Dosage: UNK
  7. IODINE [Suspect]
     Active Substance: IODINE
     Dosage: UNK
  8. LANREOTIDE [Suspect]
     Active Substance: LANREOTIDE
     Dosage: UNK
  9. FLOXIN [Suspect]
     Active Substance: OFLOXACIN
     Dosage: UNK

REACTIONS (1)
  - Drug hypersensitivity [Unknown]
